FAERS Safety Report 19880253 (Version 2)
Quarter: 2021Q4

REPORT INFORMATION
  Report Type: Report from Study
  Country: CA (occurrence: CA)
  Receive Date: 20210925
  Receipt Date: 20211210
  Transmission Date: 20220303
  Serious: Yes (Hospitalization)
  Sender: FDA-Public Use
  Company Number: CA-ABBVIE-21K-028-4090011-00

PATIENT
  Age: 60 Year
  Sex: Male

DRUGS (3)
  1. HUMIRA [Suspect]
     Active Substance: ADALIMUMAB
     Indication: Crohn^s disease
     Route: 058
     Dates: start: 20160721, end: 20210909
  2. HUMIRA [Suspect]
     Active Substance: ADALIMUMAB
     Route: 058
     Dates: start: 2021
  3. METRONIDAZOLE BENZOATE [Concomitant]
     Active Substance: METRONIDAZOLE BENZOATE
     Indication: Product used for unknown indication

REACTIONS (7)
  - Malaise [Unknown]
  - Weight decreased [Unknown]
  - Infection [Not Recovered/Not Resolved]
  - White blood cell count abnormal [Unknown]
  - Anal incontinence [Not Recovered/Not Resolved]
  - Procedural intestinal perforation [Unknown]
  - Uveitis [Unknown]

NARRATIVE: CASE EVENT DATE: 20210901
